FAERS Safety Report 5855736-2 (Version None)
Quarter: 2008Q3

REPORT INFORMATION
  Report Type: 
  Country: None (occurrence: None)
  Receive Date: 20080821
  Receipt Date: 20080821
  Transmission Date: 20090109
  Serious: No
  Sender: FDA-Public Use
  Company Number: None

PATIENT
  Age: 82 Year
  Sex: Male

DRUGS (7)
  1. KETEK [Suspect]
     Dates: start: 20060601, end: 20060601
  2. PROVIGIL [Concomitant]
  3. LORAZEPAM [Concomitant]
  4. HYDROCHLOROTHIAZIDE [Concomitant]
  5. NEFEDIPINE [Concomitant]
  6. THEOPHYLLINE [Concomitant]
  7. PREVACID [Concomitant]

REACTIONS (11)
  - ASCITES [None]
  - CHOLESTASIS [None]
  - CHRONIC HEPATITIS [None]
  - FIBROSIS [None]
  - HEPATIC CIRRHOSIS [None]
  - HYPERSOMNIA [None]
  - JAUNDICE CHOLESTATIC [None]
  - LIVER INJURY [None]
  - PORTAL HYPERTENSIVE GASTROPATHY [None]
  - VARICES OESOPHAGEAL [None]
  - WEIGHT DECREASED [None]
